FAERS Safety Report 5801084-6 (Version None)
Quarter: 2008Q3

REPORT INFORMATION
  Report Type: 
  Country: None (occurrence: None)
  Receive Date: 20080707
  Receipt Date: 20080702
  Transmission Date: 20090109
  Serious: Yes (Hospitalization)
  Sender: FDA-Public Use
  Company Number: GB-RANBAXY-2008RR-16163

PATIENT

DRUGS (9)
  1. ATENOLOL [Suspect]
  2. CO-PROXAMOL [Suspect]
  3. ENBREL [Suspect]
     Indication: RHEUMATOID ARTHRITIS
     Dosage: 25 MG, 2/WEEK
     Dates: start: 20060323
  4. METHOTREXATE [Suspect]
  5. PREDNISOLONE [Suspect]
  6. VIOXX [Suspect]
  7. CALCIUM [Concomitant]
  8. GLICLAZIDE [Concomitant]
  9. VITAMIN D [Concomitant]

REACTIONS (2)
  - DIVERTICULUM [None]
  - ENTEROVESICAL FISTULA [None]
